FAERS Safety Report 16581394 (Version 7)
Quarter: 2020Q1

REPORT INFORMATION
  Report Type: Report from Study
  Country: CO (occurrence: CO)
  Receive Date: 20190716
  Receipt Date: 20200313
  Transmission Date: 20200409
  Serious: Yes (Hospitalization)
  Sender: FDA-Public Use
  Company Number: CO-INCYTE CORPORATION-2019IN006890

PATIENT

DRUGS (4)
  1. JAKAVI [Suspect]
     Active Substance: RUXOLITINIB
     Dosage: 20 MG, Q12H
     Route: 048
     Dates: start: 201906, end: 20191201
  2. NEOSALDINA [CAFFEINE;ISOMETHEPTENE;METAMIZOLE SODIUM] [Concomitant]
     Indication: MIGRAINE
     Dosage: 30 MG, ACCORDING TO THE NEED
     Route: 048
  3. JAKAVI [Suspect]
     Active Substance: RUXOLITINIB
     Indication: MYELOFIBROSIS
     Dosage: 40 MG, QD
     Route: 048
     Dates: start: 20190614
  4. EPOYET [Concomitant]
     Indication: ANAEMIA
     Dosage: 2000 U (MONDAYS, WEDNESDAYS AND FRIDAYS)
     Route: 058

REACTIONS (15)
  - Somnolence [Unknown]
  - Neutrophil count abnormal [Recovered/Resolved]
  - Pneumonia [Unknown]
  - Dizziness [Unknown]
  - Neck pain [Recovering/Resolving]
  - Platelet count decreased [Recovered/Resolved]
  - Jugular vein thrombosis [Recovering/Resolving]
  - Pyrexia [Recovered/Resolved]
  - Haemoglobin decreased [Recovered/Resolved]
  - Bone marrow disorder [Unknown]
  - Platelet count increased [Recovering/Resolving]
  - Streptococcal infection [Recovered/Resolved]
  - White blood cell count increased [Recovered/Resolved]
  - Inappropriate schedule of product administration [Unknown]
  - Septic shock [Recovered/Resolved]

NARRATIVE: CASE EVENT DATE: 20190614
